FAERS Safety Report 8036816-2 (Version None)
Quarter: 2012Q1

REPORT INFORMATION
  Report Type: 
  Country: None (occurrence: None)
  Receive Date: 20120106
  Receipt Date: 20111229
  Transmission Date: 20120608
  Serious: Yes (Other)
  Sender: FDA-Public Use
  Company Number: 2012MA000043

PATIENT
  Sex: Male

DRUGS (5)
  1. ZOPICLONE (ZOPICLONE) [Suspect]
     Dosage: 7.5 MG;
  2. AGOMELATINE (NO PREF. NAME) [Suspect]
     Dosage: 50 MG;
  3. AGOMELATINE [Concomitant]
  4. FLUOXETINE [Suspect]
     Indication: ANTIDEPRESSANT THERAPY
     Dosage: 20 MG;
  5. ALCOHOL (ETHANOL) [Suspect]
     Dosage: PO
     Route: 048

REACTIONS (5)
  - DEPRESSED MOOD [None]
  - CRIME [None]
  - INCORRECT DOSE ADMINISTERED [None]
  - AMNESIA [None]
  - WITHDRAWAL SYNDROME [None]
